FAERS Safety Report 4700363-3 (Version None)
Quarter: 2005Q2

REPORT INFORMATION
  Report Type: 
  Country: None (occurrence: None)
  Receive Date: 20050627
  Receipt Date: 20050620
  Transmission Date: 20051028
  Serious: Yes (Other)
  Sender: FDA-Public Use
  Company Number: PHBS2005CA08981

PATIENT
  Age: 45 Year
  Sex: Female

DRUGS (1)
  1. ESTRADERM [Suspect]
     Dosage: 100 UG, QD
     Route: 062

REACTIONS (5)
  - BRONCHITIS [None]
  - DEVICE FAILURE [None]
  - HYPERHIDROSIS [None]
  - PNEUMONIA [None]
  - PYREXIA [None]
